FAERS Safety Report 16104135 (Version 1)
Quarter: 2019Q1

REPORT INFORMATION
  Report Type: Other
  Country: IT (occurrence: IT)
  Receive Date: 20190322
  Receipt Date: 20190322
  Transmission Date: 20190418
  Serious: Yes (Life-Threatening, Hospitalization, Other)
  Sender: FDA-Public Use
  Company Number: IT-ACCORD-114915

PATIENT
  Age: 37 Year
  Sex: Female

DRUGS (8)
  1. LAROXYL [Concomitant]
     Active Substance: AMITRIPTYLINE HYDROCHLORIDE
     Dosage: UNK
     Route: 065
  2. ARIPIPRAZOLE. [Suspect]
     Active Substance: ARIPIPRAZOLE
     Dosage: 28 DF, QD
     Route: 048
     Dates: start: 20150503, end: 20150503
  3. PROZAC [Suspect]
     Active Substance: FLUOXETINE HYDROCHLORIDE
     Dosage: 15 UNIT, UNK
     Route: 048
     Dates: start: 20150503, end: 20150503
  4. SERTRALINE [Suspect]
     Active Substance: SERTRALINE HYDROCHLORIDE
     Dosage: 30 DF, QD, ALSO RECEIVED 30 DF, TABLET FROM 03-MAY-2015 TO 03-MAY-2015
     Route: 048
     Dates: start: 20150503, end: 20150503
  5. DEPAKIN [Suspect]
     Active Substance: VALPROATE SODIUM
     Dosage: 26 DF, UNK
     Route: 048
     Dates: start: 20150503, end: 20150503
  6. FLUOXETINE [Suspect]
     Active Substance: FLUOXETINE HYDROCHLORIDE
     Dosage: 15 UNIT, UNK
     Route: 065
     Dates: start: 20150503
  7. EN [Suspect]
     Active Substance: DELORAZEPAM
     Dosage: 20 DF, UNK
     Route: 048
     Dates: start: 20150503, end: 20150503
  8. GABAPENTIN. [Suspect]
     Active Substance: GABAPENTIN
     Dosage: 50 DF, QD, ALSO RECEIVED 50 DF, CAPSULE FROM 03-MAY-2015 TO 03-MAY-2015
     Route: 048
     Dates: start: 20150503, end: 20150503

REACTIONS (4)
  - Drug abuse [Unknown]
  - Intentional self-injury [Unknown]
  - Coma [Recovered/Resolved]
  - Intentional overdose [Unknown]

NARRATIVE: CASE EVENT DATE: 20150503
